FAERS Safety Report 23956633 (Version 1)
Quarter: 2024Q2

REPORT INFORMATION
  Report Type: Spontaneous
  Country: IR (occurrence: IR)
  Receive Date: 20240610
  Receipt Date: 20240610
  Transmission Date: 20240716
  Serious: Yes (Hospitalization)
  Sender: FDA-Public Use
  Company Number: IR-Nexus Pharma-000274

PATIENT
  Age: 32 Year
  Sex: Male

DRUGS (1)
  1. COLISTIMETHATE SODIUM [Suspect]
     Active Substance: COLISTIMETHATE SODIUM
     Route: 042

REACTIONS (1)
  - Pseudo-Bartter syndrome [Recovered/Resolved]
